FAERS Safety Report 10017199 (Version 3)
Quarter: 2016Q1

REPORT INFORMATION
  Report Type: Report from Study
  Country: CZ (occurrence: CZ)
  Receive Date: 20140318
  Receipt Date: 20160304
  Transmission Date: 20160525
  Serious: Yes (Hospitalization)
  Sender: FDA-Public Use
  Company Number: CZ-ROCHE-1260112

PATIENT
  Age: 60 Year
  Sex: Male
  Weight: 71.5 kg

DRUGS (18)
  1. VINCRISTINE [Suspect]
     Active Substance: VINCRISTINE
     Indication: B-CELL LYMPHOMA
     Dosage: 21/NOV/2012, MOST RECENT DOSE (2 MG) OF VINCRISTINE PRIOR TO EVENT
     Route: 042
     Dates: start: 20120808
  2. PREDNISONE. [Suspect]
     Active Substance: PREDNISONE
     Indication: B-CELL LYMPHOMA
     Dosage: 25/NOV/2012, MOST RECENT DOSE (100 MG) OF PREDNISONE PRIOR TO EVENT
     Route: 065
     Dates: start: 20120808
  3. METOPROLOL TARTRATE. [Concomitant]
     Active Substance: METOPROLOL TARTRATE
     Indication: TACHYCARDIA
     Route: 065
     Dates: start: 2009
  4. PARACETAMOL [Concomitant]
     Active Substance: ACETAMINOPHEN
     Route: 065
     Dates: start: 20120808
  5. PARACETAMOL [Concomitant]
     Active Substance: ACETAMINOPHEN
     Route: 065
     Dates: start: 20130401, end: 20130503
  6. CIPROFLOXACINUM [Concomitant]
     Indication: C-REACTIVE PROTEIN INCREASED
     Route: 065
     Dates: start: 20130503, end: 20130508
  7. CYCLOPHOSPHAMIDE. [Suspect]
     Active Substance: CYCLOPHOSPHAMIDE
     Indication: B-CELL LYMPHOMA
     Dosage: ON 21/NOV/2012, MOST RECENT DOSE (1500 MG) OF CYCLOPHOSPHAMIDE PRIOR TO EVENT
     Route: 042
     Dates: start: 20120808
  8. DOXORUBICIN [Suspect]
     Active Substance: DOXORUBICIN
     Indication: B-CELL LYMPHOMA
     Dosage: 21/NOV/2012, MOST RECENT DOSE 100 MG OF DOXORUBICIN PRIOR TO EVENT
     Route: 042
     Dates: start: 20120808
  9. TAMSULOSINI HYDROCHLORIDUM [Concomitant]
     Indication: BENIGN PROSTATIC HYPERPLASIA
     Route: 065
     Dates: start: 2011
  10. BISULEPIN HYDROCHLORIDE [Concomitant]
     Active Substance: BISULEPIN HYDROCHLORIDE
     Route: 065
     Dates: start: 20120808
  11. HEPARIN NATRIUM [Concomitant]
     Route: 065
     Dates: start: 20130503
  12. AMOXICILLINUM [Concomitant]
     Indication: C-REACTIVE PROTEIN INCREASED
     Route: 065
     Dates: start: 20130503, end: 20130510
  13. AMOXICILLINUM [Concomitant]
     Indication: PYREXIA
  14. RED BLOOD CELLS [Concomitant]
     Active Substance: HUMAN RED BLOOD CELL
     Indication: ANAEMIA
     Route: 065
     Dates: start: 20130504, end: 20130504
  15. HYDROCORTISONUM [Concomitant]
     Active Substance: HYDROCORTISONE
     Route: 065
     Dates: start: 20121212
  16. OBINUTUZUMAB [Suspect]
     Active Substance: OBINUTUZUMAB
     Indication: B-CELL LYMPHOMA
     Dosage: 06/MAR/2013, LAST OBINUTUZUMAB DOSE CONCENTRATION 4.00 MG/ML OF VOLUME 250 ML
     Route: 042
     Dates: start: 20120808
  17. ALLOPURINOLUM [Concomitant]
     Route: 065
     Dates: start: 20120808
  18. CIPROFLOXACINUM [Concomitant]
     Indication: PYREXIA

REACTIONS (1)
  - Cardiac failure [Recovered/Resolved]

NARRATIVE: CASE EVENT DATE: 20130503
